FAERS Safety Report 15195822 (Version 1)
Quarter: 2018Q3

REPORT INFORMATION
  Report Type: Spontaneous
  Country: US (occurrence: US)
  Receive Date: 20180725
  Receipt Date: 20180725
  Transmission Date: 20181010
  Serious: No
  Sender: FDA-Public Use
  Company Number: US-PFIZER INC-2018293465

PATIENT
  Age: 80 Year
  Sex: Female
  Weight: 58.5 kg

DRUGS (6)
  1. MENEST [Suspect]
     Active Substance: ESTROGENS, ESTERIFIED
     Indication: VULVOVAGINAL DRYNESS
  2. MENEST [Suspect]
     Active Substance: ESTROGENS, ESTERIFIED
     Indication: HOT FLUSH
     Dosage: 0.3 MG, 2X/DAY
     Route: 048
  3. SYNTHROID [Concomitant]
     Active Substance: LEVOTHYROXINE SODIUM
     Indication: HYPOTHYROIDISM
     Dosage: 0.75 MG, 1X/DAY
  4. PREDNISOLONE. [Concomitant]
     Active Substance: PREDNISOLONE
     Indication: GLAUCOMA SURGERY
     Dosage: EVERY 2 HOURS
     Dates: start: 20180604
  5. MENEST [Suspect]
     Active Substance: ESTROGENS, ESTERIFIED
     Indication: HOT FLUSH
     Dosage: 0.625 MG, 1X/DAY
     Route: 048
     Dates: start: 201807
  6. MENEST [Suspect]
     Active Substance: ESTROGENS, ESTERIFIED
     Indication: VULVOVAGINAL DRYNESS

REACTIONS (3)
  - Rash pustular [Unknown]
  - Rash [Not Recovered/Not Resolved]
  - Dose calculation error [Unknown]
